FAERS Safety Report 6359029-9 (Version None)
Quarter: 2009Q3

REPORT INFORMATION
  Report Type: 
  Country: None (occurrence: None)
  Receive Date: 20090917
  Receipt Date: 20090911
  Transmission Date: 20100115
  Serious: Yes (Other)
  Sender: FDA-Public Use
  Company Number: FR-BIOGENIDEC-2009BI012958

PATIENT
  Age: 34 Year
  Sex: Female

DRUGS (2)
  1. TYSABRI [Suspect]
     Indication: RELAPSING-REMITTING MULTIPLE SCLEROSIS
     Route: 042
     Dates: start: 20080808, end: 20090317
  2. MANTADIX [Concomitant]
     Indication: FATIGUE
     Route: 048
     Dates: end: 20090301

REACTIONS (2)
  - CYTOLYTIC HEPATITIS [None]
  - MULTIPLE SCLEROSIS RELAPSE [None]
